FAERS Safety Report 20020707 (Version 1)
Quarter: 2021Q4

REPORT INFORMATION
  Report Type: Spontaneous
  Country: None (occurrence: US)
  Receive Date: 20211101
  Receipt Date: 20211101
  Transmission Date: 20220303
  Serious: Yes (Hospitalization)
  Sender: FDA-Public Use
  Company Number: US-Acella Pharmaceuticals, LLC-2121288

PATIENT
  Age: 29 Year
  Sex: Female

DRUGS (3)
  1. NIFEDIPINE [Suspect]
     Active Substance: NIFEDIPINE
     Indication: Pre-eclampsia
     Route: 065
  2. LABETALOL [Suspect]
     Active Substance: LABETALOL\LABETALOL HYDROCHLORIDE
     Route: 042
  3. MAGNESIUM SULFATE [Suspect]
     Active Substance: MAGNESIUM SULFATE
     Route: 042

REACTIONS (14)
  - Dyspnoea [Unknown]
  - Dizziness [Unknown]
  - Abdominal pain [Unknown]
  - Abdominal distension [Unknown]
  - Urine output decreased [Unknown]
  - Hypomagnesaemia [Unknown]
  - Flushing [Unknown]
  - Hyporeflexia [Unknown]
  - Muscular weakness [Unknown]
  - Lethargy [Unknown]
  - Respiratory rate decreased [Unknown]
  - Bradycardia [Unknown]
  - Hypotension [Unknown]
  - Pyuria [Unknown]
